FAERS Safety Report 19959630 (Version 2)
Quarter: 2021Q4

REPORT INFORMATION
  Report Type: Spontaneous
  Country: TH (occurrence: TH)
  Receive Date: 20211015
  Receipt Date: 20211022
  Transmission Date: 20220303
  Serious: Yes (Hospitalization, Other)
  Sender: FDA-Public Use
  Company Number: TH-BOEHRINGERINGELHEIM-2021-BI-131469

PATIENT
  Age: 82 Year
  Sex: Male
  Weight: 78 kg

DRUGS (13)
  1. OLODATEROL HYDROCHLORIDE\TIOTROPIUM BROMIDE MONOHYDRATE [Suspect]
     Active Substance: OLODATEROL HYDROCHLORIDE\TIOTROPIUM BROMIDE MONOHYDRATE
     Indication: Chronic obstructive pulmonary disease
     Dosage: TIOTROPIUM/OLODATEROL INHALE 2 PUFF OD
     Route: 055
     Dates: start: 20200923
  2. FLUTICASONE PROPIONATE\SALMETEROL XINAFOATE [Suspect]
     Active Substance: FLUTICASONE PROPIONATE\SALMETEROL XINAFOATE
     Indication: Chronic obstructive pulmonary disease
     Dosage: SALMETEROL/FLUTICASONE (25/250) 2 PUFF Q 12 HR
     Dates: start: 20180314, end: 2018
  3. FLUTICASONE PROPIONATE\SALMETEROL XINAFOATE [Suspect]
     Active Substance: FLUTICASONE PROPIONATE\SALMETEROL XINAFOATE
     Dosage: SALMETEROL/FLUTICASONE (25/250) 1 PUFF Q 12 HR
     Dates: start: 2018, end: 20200729
  4. FLUTICASONE PROPIONATE\SALMETEROL XINAFOATE [Suspect]
     Active Substance: FLUTICASONE PROPIONATE\SALMETEROL XINAFOATE
     Dosage: SALMETEROL/FLUTICASONE PROPIONATE (25/250) 2 PUFF Q 12 HR
     Dates: start: 20200729, end: 20200906
  5. FLUTICASONE PROPIONATE\SALMETEROL XINAFOATE [Suspect]
     Active Substance: FLUTICASONE PROPIONATE\SALMETEROL XINAFOATE
     Dosage: SALMETEROL/FLUTICASONE PROPIONATE 1 PUFF Q 12 HR
     Dates: start: 20200906, end: 20210319
  6. FLUTICASONE PROPIONATE\SALMETEROL XINAFOATE [Suspect]
     Active Substance: FLUTICASONE PROPIONATE\SALMETEROL XINAFOATE
     Dosage: SALMETEROL/FLUTICASONE PROPIONATE 2 PUFF Q 12 HR
     Dates: start: 20210319, end: 20210711
  7. THEOPHYLLINE ANHYDROUS [Concomitant]
     Active Substance: THEOPHYLLINE ANHYDROUS
     Indication: Chronic obstructive pulmonary disease
     Dosage: THEOPHYLLINE 0.5 TAB TWICE DAILY ORALLY
     Route: 048
     Dates: start: 20180314, end: 20210319
  8. THEOPHYLLINE ANHYDROUS [Concomitant]
     Active Substance: THEOPHYLLINE ANHYDROUS
     Dosage: THEOPHYLLINE 1 TAB BID
     Route: 048
     Dates: start: 20210319
  9. FELODIPINE [Concomitant]
     Active Substance: FELODIPINE
     Indication: Hypertension
     Dosage: FELODIPINE 5 MG 1 TAB OD
  10. HYDROCHLOROTHIAZIDE [Concomitant]
     Active Substance: HYDROCHLOROTHIAZIDE
     Indication: Hypertension
     Dosage: HCTZ 0.5 TAB OD
  11. LOSARTAN [Concomitant]
     Active Substance: LOSARTAN
     Indication: Hypertension
     Dosage: LOSARTAN 50 MG 0.5 TAB OD
  12. SIMVASTATIN [Concomitant]
     Active Substance: SIMVASTATIN
     Indication: Dyslipidaemia
     Dosage: SIMVASTATIN 20 MG 1 TAB OD
  13. BROMHEXINE [Concomitant]
     Active Substance: BROMHEXINE
     Indication: Product used for unknown indication
     Dosage: BROMHEXINE 1 TAB 3 TIMES/DAY ORALLY
     Route: 048
     Dates: start: 20210711

REACTIONS (8)
  - Chronic obstructive pulmonary disease [Recovered/Resolved]
  - Chronic obstructive pulmonary disease [Recovered/Resolved]
  - Chronic obstructive pulmonary disease [Recovered/Resolved]
  - Pulmonary hypertension [Unknown]
  - Chronic obstructive pulmonary disease [Recovered/Resolved]
  - Chronic obstructive pulmonary disease [Recovered/Resolved]
  - Pyrexia [Recovered/Resolved]
  - Productive cough [Unknown]

NARRATIVE: CASE EVENT DATE: 20201121
